FAERS Safety Report 20842583 (Version 1)
Quarter: 2022Q2

REPORT INFORMATION
  Report Type: Spontaneous
  Country: JP (occurrence: JP)
  Receive Date: 20220518
  Receipt Date: 20220518
  Transmission Date: 20220721
  Serious: Yes (Other)
  Sender: FDA-Public Use
  Company Number: JP-LUPIN PHARMACEUTICALS INC.-2022-07078

PATIENT
  Age: 78 Year
  Sex: Female

DRUGS (3)
  1. METHYLPREDNISOLONE [Suspect]
     Active Substance: METHYLPREDNISOLONE
     Indication: Mononeuropathy multiplex
     Dosage: UNK, HE TREATED WITH A METHYLPREDNISOLONE PULSE
     Route: 065
  2. PREDNISOLONE [Suspect]
     Active Substance: PREDNISOLONE
     Indication: Mononeuropathy multiplex
     Dosage: 1 MILLIGRAM/KILOGRAM, QD, HIGH-DOSE ORAL PREDNISOLONE (1 MG/KG/DAY)
     Route: 048
  3. HUMAN IMMUNOGLOBULIN G [Suspect]
     Active Substance: HUMAN IMMUNOGLOBULIN G
     Indication: Mononeuropathy multiplex
     Dosage: UNK, REPEATED INTRAVENOUS IMMUNOGLOBULIN (IVIG)
     Route: 042

REACTIONS (2)
  - Deep vein thrombosis [Recovering/Resolving]
  - Skin ulcer [Recovering/Resolving]
